FAERS Safety Report 9607893 (Version 1)
Quarter: 2013Q4

REPORT INFORMATION
  Report Type: Spontaneous
  Country: US (occurrence: None)
  Receive Date: 20131007
  Receipt Date: 20131007
  Transmission Date: 20140711
  Serious: Yes (Hospitalization)
  Sender: FDA-Public Use
  Company Number: AUR-APL-2013-07965

PATIENT
  Age: 86 Year
  Sex: Male

DRUGS (12)
  1. GALANTAMINE [Suspect]
     Indication: PRODUCT USED FOR UNKNOWN INDICATION
     Dosage: 24 MG 1 IN 1 D, STOPPED.
  2. RISPERIDONE [Concomitant]
  3. AMLODIPINE [Concomitant]
  4. LISINOPRIL [Concomitant]
  5. HYDROCHLOROTHIAZIDE [Concomitant]
  6. ASPIRIN (ACETYLSALICYLIC ACID) [Concomitant]
  7. ROSUVASTATIN [Concomitant]
  8. GABAPENTIN [Concomitant]
  9. GOSERELIN [Concomitant]
  10. INSULIN GLARGINE [Concomitant]
  11. CYANOCOBALAMIN [Concomitant]
  12. CITALOPRAM [Concomitant]

REACTIONS (3)
  - Fall [None]
  - Weight decreased [None]
  - Decreased appetite [None]
